FAERS Safety Report 4700018-5 (Version None)
Quarter: 2005Q2

REPORT INFORMATION
  Report Type: 
  Country: None (occurrence: None)
  Receive Date: 20050623
  Receipt Date: 20050609
  Transmission Date: 20051028
  Serious: Yes (Hospitalization)
  Sender: FDA-Public Use
  Company Number: 200313264BCC

PATIENT
  Age: 72 Year
  Sex: Female
  Weight: 68.0396 kg

DRUGS (10)
  1. ALEVE [Suspect]
     Indication: DEMENTIA ALZHEIMER'S TYPE
     Dosage: BID, ORAL
     Route: 048
     Dates: start: 20021219, end: 20030414
  2. ALEVE [Suspect]
     Indication: PROPHYLAXIS
     Dosage: BID, ORAL
     Route: 048
     Dates: start: 20021219, end: 20030414
  3. ASPIRIN [Concomitant]
  4. PREMARIN [Concomitant]
  5. PROMETRIUM [Concomitant]
  6. B12 [Concomitant]
  7. VITAMIN E [Concomitant]
  8. CALCIUM GLUCONATE [Concomitant]
  9. FOLIC ACID [Concomitant]
  10. RED-YEAST RICE [Concomitant]

REACTIONS (1)
  - DIVERTICULITIS [None]
